FAERS Safety Report 18510749 (Version 1)
Quarter: 2020Q4

REPORT INFORMATION
  Report Type: Spontaneous
  Country: US (occurrence: US)
  Receive Date: 20201116
  Receipt Date: 20201116
  Transmission Date: 20210114
  Serious: Yes (Death)
  Sender: FDA-Public Use
  Company Number: None

PATIENT
  Age: 66 Year
  Sex: Male

DRUGS (2)
  1. CYCLOPHOSPHAMIDE 50MG [Suspect]
     Active Substance: CYCLOPHOSPHAMIDE
     Indication: PLASMA CELL MYELOMA
     Route: 048
     Dates: start: 20190615, end: 20191015
  2. SOFOSBUVIR/VELPATASVIR 400MG/100MG [Suspect]
     Active Substance: SOFOSBUVIR\VELPATASVIR
     Route: 048
     Dates: start: 20191019, end: 20191219

REACTIONS (3)
  - Encephalopathy [None]
  - Circulatory collapse [None]
  - Failure to thrive [None]

NARRATIVE: CASE EVENT DATE: 20201116
